FAERS Safety Report 10064520 (Version 1)
Quarter: 2014Q2

REPORT INFORMATION
  Report Type: Report from Study
  Country: CH (occurrence: CH)
  Receive Date: 20140408
  Receipt Date: 20140408
  Transmission Date: 20141212
  Serious: Yes (Hospitalization)
  Sender: FDA-Public Use
  Company Number: CH-ROCHE-1372876

PATIENT
  Age: 72 Year
  Sex: 0

DRUGS (5)
  1. PERTUZUMAB [Suspect]
     Indication: BREAST CANCER
     Dosage: LOADING DOSE
     Route: 042
     Dates: start: 20131126, end: 20131126
  2. PERTUZUMAB [Suspect]
     Dosage: MAINTANENCE DOSE: LAST DOSE PRIOR TO SAE WAS ON 12/MAR/2014
     Route: 042
     Dates: start: 20131126
  3. TRASTUZUMAB [Suspect]
     Indication: BREAST CANCER
     Dosage: LOADING DOSE
     Route: 042
     Dates: start: 20131126, end: 20131126
  4. TRASTUZUMAB [Suspect]
     Dosage: MAINTANENCE DOSE: LAST DOSE PRIOR TO SAE WAS ON 12/MAR/2014
     Route: 042
     Dates: start: 20131126
  5. LYRICA [Concomitant]
     Route: 048
     Dates: start: 20140324

REACTIONS (2)
  - Dyspnoea [Recovered/Resolved]
  - Panic attack [Recovered/Resolved]
